FAERS Safety Report 21239365 (Version 2)
Quarter: 2022Q3

REPORT INFORMATION
  Report Type: Report from Study
  Country: US (occurrence: US)
  Receive Date: 20220822
  Receipt Date: 20220907
  Transmission Date: 20221026
  Serious: Yes (Other)
  Sender: FDA-Public Use
  Company Number: US-AQUESTIVE THERAPEUTICS, INC.-2022AQU00035

PATIENT
  Sex: Female

DRUGS (1)
  1. EXSERVAN [Suspect]
     Active Substance: RILUZOLE

REACTIONS (6)
  - Hospice care [Not Recovered/Not Resolved]
  - Terminal state [Not Recovered/Not Resolved]
  - Starvation [Not Recovered/Not Resolved]
  - Disease progression [Not Recovered/Not Resolved]
  - Drug ineffective [Recovered/Resolved]
  - Treatment noncompliance [Recovered/Resolved]
